FAERS Safety Report 19396089 (Version 7)
Quarter: 2023Q4

REPORT INFORMATION
  Report Type: Report from Study
  Country: US (occurrence: US)
  Receive Date: 20210609
  Receipt Date: 20231030
  Transmission Date: 20240110
  Serious: Yes (Other)
  Sender: FDA-Public Use
  Company Number: US-TAKEDA-US202022863

PATIENT
  Age: 54 Year
  Sex: Male
  Weight: 83 kg

DRUGS (5)
  1. LANADELUMAB [Suspect]
     Active Substance: LANADELUMAB
     Indication: Immune system disorder
     Dosage: 2 MILLILITER, Q2WEEKS
     Route: 058
     Dates: start: 20190812
  2. LANADELUMAB [Suspect]
     Active Substance: LANADELUMAB
     Dosage: 300 MILLIGRAM, Q2WEEKS
     Route: 058
     Dates: start: 202205
  3. LANADELUMAB [Suspect]
     Active Substance: LANADELUMAB
     Dosage: 300 MILLIGRAM, Q2WEEKS
     Route: 058
  4. LANADELUMAB [Suspect]
     Active Substance: LANADELUMAB
     Dosage: 300 MILLIGRAM, Q2WEEKS
     Route: 058
     Dates: start: 201908
  5. ICATIBANT ACETATE [Concomitant]
     Active Substance: ICATIBANT ACETATE
     Dosage: UNK
     Route: 065

REACTIONS (6)
  - Cellulitis [Unknown]
  - COVID-19 [Unknown]
  - Weight fluctuation [Unknown]
  - Weight increased [Unknown]
  - Weight decreased [Unknown]
  - Hereditary angioedema [Recovered/Resolved]

NARRATIVE: CASE EVENT DATE: 20200705
